FAERS Safety Report 4572965-9 (Version None)
Quarter: 2005Q1

REPORT INFORMATION
  Report Type: 
  Country: None (occurrence: None)
  Receive Date: 20050203
  Receipt Date: 20040120
  Transmission Date: 20050727
  Serious: Yes (Other)
  Sender: FDA-Public Use
  Company Number: 210824

PATIENT
  Age: 56 Year
  Sex: Female
  Weight: 64.5015 kg

DRUGS (3)
  1. HERCEPTIN [Suspect]
     Indication: BREAST CANCER METASTATIC
     Dosage: 4 MG/KG SINGLE INTRAVENOUS
     Route: 042
     Dates: start: 20040401, end: 20040401
  2. EPIRUBICIN [Suspect]
     Indication: BREAST CANCER METASTATIC
     Dosage: 60MG/M2 Q3W INTRAVENOUS
     Route: 042
     Dates: start: 20040401, end: 20040715
  3. CYCLOFOSFAMIDE (CYCLOPHOSHAMIDE) [Suspect]
     Indication: BREAST CANCER METASTATIC
     Dosage: 600 MG /M2 Q3W INTRAVENOUS
     Route: 042
     Dates: start: 20040401, end: 20040715

REACTIONS (10)
  - CARDIAC DISORDER [None]
  - CARDIAC VALVE DISEASE [None]
  - DYSPNOEA [None]
  - ECHOCARDIOGRAM ABNORMAL [None]
  - EJECTION FRACTION DECREASED [None]
  - ELECTROCARDIOGRAM T WAVE ABNORMAL [None]
  - MITRAL VALVE INCOMPETENCE [None]
  - MYOPATHY [None]
  - PALPITATIONS [None]
  - TACHYCARDIA [None]
